FAERS Safety Report 11229163 (Version 6)
Quarter: 2019Q1

REPORT INFORMATION
  Report Type: Spontaneous
  Country: US (occurrence: US)
  Receive Date: 20150630
  Receipt Date: 20190214
  Transmission Date: 20190417
  Serious: Yes (Other)
  Sender: FDA-Public Use
  Company Number: US-PFIZER INC-2015217547

PATIENT
  Age: 59 Year
  Sex: Male

DRUGS (5)
  1. FOLIC ACID XTRA [Concomitant]
     Dosage: UNK
  2. NORCO [Concomitant]
     Active Substance: ACETAMINOPHEN\HYDROCODONE BITARTRATE
     Dosage: UNK
  3. NABUMETONE. [Concomitant]
     Active Substance: NABUMETONE
     Dosage: UNK
  4. XELJANZ [Suspect]
     Active Substance: TOFACITINIB CITRATE
     Indication: RHEUMATOID ARTHRITIS
     Dosage: 5 MG, 2X/DAY
     Route: 048
     Dates: start: 20150624, end: 2015
  5. PRILOSEC [Concomitant]
     Active Substance: OMEPRAZOLE MAGNESIUM
     Dosage: UNK

REACTIONS (7)
  - Rheumatoid arthritis [Unknown]
  - Product dose omission [Unknown]
  - Discomfort [Unknown]
  - Nasopharyngitis [Unknown]
  - Condition aggravated [Unknown]
  - Tooth infection [Unknown]
  - Sensitivity to weather change [Unknown]
